FAERS Safety Report 14350535 (Version 2)
Quarter: 2018Q1

REPORT INFORMATION
  Report Type: Report from Study
  Country: US (occurrence: US)
  Receive Date: 20180103
  Receipt Date: 20180201
  Transmission Date: 20180509
  Serious: No
  Sender: FDA-Public Use
  Company Number: US-009507513-1712USA003772

PATIENT
  Age: 17 Year
  Sex: Female
  Weight: 70.3 kg

DRUGS (2)
  1. IMPLANON [Suspect]
     Active Substance: ETONOGESTREL
     Indication: CONTRACEPTION
     Dosage: 68 MG (1ROD), 3 YEARS (FREQUENCY ALSO REPORTED AS CONTINUOUS); STRENGTH: 68MG
     Route: 058
     Dates: start: 20170502, end: 20171227
  2. IMPLANON [Suspect]
     Active Substance: ETONOGESTREL
     Dosage: 68 MG (1ROD), 3 YEARS (FREQUENCY ALSO REPORTED AS CONTINUOUS); STRENGTH: 68MG
     Route: 058
     Dates: start: 20171227

REACTIONS (3)
  - No adverse event [Unknown]
  - Device breakage [Recovered/Resolved]
  - Complication of device removal [Recovered/Resolved]

NARRATIVE: CASE EVENT DATE: 201710
